FAERS Safety Report 6354740-8 (Version None)
Quarter: 2009Q3

REPORT INFORMATION
  Report Type: 
  Country: None (occurrence: None)
  Receive Date: 20090914
  Receipt Date: 20090903
  Transmission Date: 20100115
  Serious: No
  Sender: FDA-Public Use
  Company Number: US-B.I. PHARMACEUTICALS,INC./RIDGEFIELD-2009-BP-10383BP

PATIENT
  Sex: Male
  Weight: 74.8 kg

DRUGS (5)
  1. FLOMAX [Suspect]
     Indication: BLADDER DISORDER
     Dosage: 0.4 MG
     Route: 048
     Dates: start: 20090501
  2. ADDERALL XR 30 [Suspect]
     Indication: MOOD ALTERED
     Route: 048
     Dates: start: 20090201
  3. OXYCONTIN [Concomitant]
  4. VALIUM [Concomitant]
  5. TOVIAZ [Concomitant]

REACTIONS (4)
  - CONDITION AGGRAVATED [None]
  - FATIGUE [None]
  - OFF LABEL USE [None]
  - PAIN [None]
